FAERS Safety Report 12947421 (Version 1)
Quarter: 2016Q4

REPORT INFORMATION
  Report Type: Spontaneous
  Country: IT (occurrence: IT)
  Receive Date: 20161116
  Receipt Date: 20161116
  Transmission Date: 20170207
  Serious: Yes (Other)
  Sender: FDA-Public Use
  Company Number: IT-PFIZER INC-2016532615

PATIENT
  Age: 64 Year
  Sex: Female
  Weight: 70 kg

DRUGS (4)
  1. XGEVA [Concomitant]
     Active Substance: DENOSUMAB
     Indication: METASTASES TO BONE
     Dosage: 120 MG, UNK
     Route: 058
     Dates: start: 20150918, end: 20161111
  2. METFORMIN [Concomitant]
     Active Substance: METFORMIN HYDROCHLORIDE
     Indication: TYPE 2 DIABETES MELLITUS
     Dosage: UNK
  3. AFINITOR [Suspect]
     Active Substance: EVEROLIMUS
     Indication: BREAST CANCER METASTATIC
     Dosage: 5 MG, DAILY
     Route: 048
     Dates: start: 20150825, end: 20160717
  4. EXEMESTANE. [Suspect]
     Active Substance: EXEMESTANE
     Indication: BREAST CANCER METASTATIC
     Dosage: 25 MG, DAILY
     Route: 048
     Dates: start: 20150825

REACTIONS (1)
  - Pneumonitis [Recovering/Resolving]

NARRATIVE: CASE EVENT DATE: 20160523
